FAERS Safety Report 7029434-6 (Version None)
Quarter: 2010Q4

REPORT INFORMATION
  Report Type: 
  Country: None (occurrence: None)
  Receive Date: 20101005
  Receipt Date: 20101001
  Transmission Date: 20110411
  Serious: Yes (Death)
  Sender: FDA-Public Use
  Company Number: PHHO2010IT07655

PATIENT
  Sex: Male
  Weight: 75 kg

DRUGS (5)
  1. CERTICAN [Suspect]
     Indication: HEART TRANSPLANT
     Dosage: UNK
     Route: 048
  2. LESCOL LES+TAB [Suspect]
     Indication: HEART TRANSPLANT
     Dosage: UNK
     Dates: start: 20100104
  3. NEORAL [Suspect]
     Dosage: UNK
     Dates: start: 20100104
  4. DELTACORTENE [Concomitant]
     Dosage: UNK
     Dates: start: 20100104
  5. STEROIDS NOS [Concomitant]

REACTIONS (1)
  - SUDDEN DEATH [None]
